FAERS Safety Report 5487292-5 (Version None)
Quarter: 2007Q4

REPORT INFORMATION
  Report Type: 
  Country: None (occurrence: None)
  Receive Date: 20071015
  Receipt Date: 20071004
  Transmission Date: 20080405
  Serious: Yes (Other)
  Sender: FDA-Public Use
  Company Number: CHPA2007US10387

PATIENT
  Age: 25 Month
  Sex: Male

DRUGS (1)
  1. TRIAMINIC INFANT DECONGESTANT COUGH (NCH)(DEXTROMETHORPHAN HYDROBROMID [Suspect]
     Indication: COUGH
     Dosage: 1 DF, ORAL
     Route: 048
     Dates: start: 20070501, end: 20070501

REACTIONS (1)
  - CONVULSION [None]
